FAERS Safety Report 6611845-1 (Version None)
Quarter: 2010Q1

REPORT INFORMATION
  Report Type: 
  Country: None (occurrence: None)
  Receive Date: 20100303
  Receipt Date: 20100224
  Transmission Date: 20100710
  Serious: Yes (Hospitalization)
  Sender: FDA-Public Use
  Company Number: US-ROCHE-687884

PATIENT
  Sex: Male

DRUGS (2)
  1. PEG-INTERFERON A-2A (RO 25-8310) [Suspect]
     Indication: HEPATITIS C
     Route: 065
     Dates: start: 20091230, end: 20100210
  2. RIBAVIRIN [Suspect]
     Indication: HEPATITIS C
     Route: 065
     Dates: start: 20091230, end: 20100210

REACTIONS (5)
  - CHILLS [None]
  - HEPATOMEGALY [None]
  - HOT FLUSH [None]
  - PAIN [None]
  - PLATELET COUNT DECREASED [None]
